FAERS Safety Report 5396749-7 (Version None)
Quarter: 2007Q3

REPORT INFORMATION
  Report Type: 
  Country: None (occurrence: None)
  Receive Date: 20070725
  Receipt Date: 20070719
  Transmission Date: 20080115
  Serious: Yes (Death)
  Sender: FDA-Public Use
  Company Number: US-GENENTECH-242887

PATIENT
  Sex: Female
  Weight: 60.771 kg

DRUGS (3)
  1. BEVACIZUMAB [Suspect]
     Indication: NON-SMALL CELL LUNG CANCER
     Dosage: 913 MG, Q3W
     Route: 042
     Dates: start: 20070525
  2. CARBOPLATIN [Suspect]
     Indication: NON-SMALL CELL LUNG CANCER
     Dosage: 455 MG, Q3W
     Route: 042
     Dates: start: 20070525
  3. TAXOL [Suspect]
     Indication: NON-SMALL CELL LUNG CANCER
     Dosage: 280 MG, Q3W
     Route: 042
     Dates: start: 20070525

REACTIONS (1)
  - SEPSIS [None]
